FAERS Safety Report 7625948-6 (Version None)
Quarter: 2011Q3

REPORT INFORMATION
  Report Type: 
  Country: None (occurrence: None)
  Receive Date: 20110721
  Receipt Date: 20110721
  Transmission Date: 20111222
  Serious: Yes (Other)
  Sender: FDA-Public Use
  Company Number: None

PATIENT
  Age: 32 Year
  Sex: Male
  Weight: 68.038 kg

DRUGS (1)
  1. SUBOXONE [Suspect]
     Indication: DRUG DEPENDENCE
     Dosage: 1 AND 1HALF
     Route: 060

REACTIONS (5)
  - PRODUCT FORMULATION ISSUE [None]
  - TONGUE BLISTERING [None]
  - GLOSSODYNIA [None]
  - APHTHOUS STOMATITIS [None]
  - ORAL DISCOMFORT [None]
